FAERS Safety Report 24554967 (Version 1)
Quarter: 2024Q4

REPORT INFORMATION
  Report Type: Spontaneous
  Country: US (occurrence: US)
  Receive Date: 20241028
  Receipt Date: 20241028
  Transmission Date: 20250115
  Serious: No
  Sender: NOVARTIS
  Company Number: US-002147023-NVSC2024US208565

PATIENT
  Sex: Male

DRUGS (1)
  1. LEQVIO [Suspect]
     Active Substance: INCLISIRAN SODIUM
     Indication: Low density lipoprotein increased
     Dosage: 284 MG (INITIAL DOSE, AGAIN AT 90 DAYS, EVERY 6 MONTHS THEREAFTER)
     Route: 058
     Dates: start: 20240801, end: 20241024

REACTIONS (1)
  - Injection site mass [Recovered/Resolved]
